FAERS Safety Report 14912185 (Version 1)
Quarter: 2018Q2

REPORT INFORMATION
  Report Type: Spontaneous
  Country: US (occurrence: US)
  Receive Date: 20180518
  Receipt Date: 20180518
  Transmission Date: 20180711
  Serious: No
  Sender: FDA-Public Use
  Company Number: US-ASTRAZENECA-2018SE59483

PATIENT
  Sex: Male
  Weight: 113.4 kg

DRUGS (1)
  1. XIGDUO XR [Suspect]
     Active Substance: DAPAGLIFLOZIN PROPANEDIOL\METFORMIN HYDROCHLORIDE
     Indication: TYPE 2 DIABETES MELLITUS
     Dosage: MG DAILY
     Route: 048
     Dates: start: 20180413

REACTIONS (8)
  - Renal pain [Recovering/Resolving]
  - Headache [Recovered/Resolved]
  - Intentional product misuse [Recovering/Resolving]
  - Lacrimation increased [Recovered/Resolved]
  - Dysuria [Recovered/Resolved]
  - Cough [Recovered/Resolved]
  - Cystitis [Recovered/Resolved]
  - Rhinorrhoea [Recovered/Resolved]
